FAERS Safety Report 9096762 (Version 5)
Quarter: 2013Q4

REPORT INFORMATION
  Report Type: Report from Study
  Country: FR (occurrence: FR)
  Receive Date: 20130211
  Receipt Date: 20131022
  Transmission Date: 20140711
  Serious: Yes (Life-Threatening, Hospitalization, Other)
  Sender: FDA-Public Use
  Company Number: FR-UCBSA-077653

PATIENT
  Age: 73 Year
  Sex: Female
  Weight: 68 kg

DRUGS (13)
  1. CIMZIA [Suspect]
     Indication: RHEUMATOID ARTHRITIS
     Dosage: THEN 200 MG EVERY TWO WEEKS
     Route: 058
     Dates: start: 20121103, end: 20130104
  2. MELOXICAM [Concomitant]
     Indication: RHEUMATOID ARTHRITIS
     Route: 048
  3. COVERSYL [Concomitant]
     Route: 048
  4. SORIATANE [Concomitant]
     Dosage: UNKNOWN DOSE
  5. CLAFORAN [Concomitant]
  6. TAVANIC [Concomitant]
  7. ROCEPHINE [Concomitant]
  8. BACTRIM [Concomitant]
  9. TAMIFLU [Concomitant]
  10. ZYVOXID [Concomitant]
  11. PARIET [Concomitant]
     Indication: EPIGASTRIC DISCOMFORT
  12. PERINDOPRIL [Concomitant]
     Indication: HYPERTENSION
  13. PARACETAMOL [Concomitant]
     Indication: RHEUMATOID ARTHRITIS

REACTIONS (6)
  - Influenza [Recovering/Resolving]
  - Lung disorder [Recovering/Resolving]
  - Septic shock [Recovering/Resolving]
  - Hemiparesis [Recovering/Resolving]
  - Pustular psoriasis [Recovering/Resolving]
  - Back pain [Recovered/Resolved]
